FAERS Safety Report 5224541-2 (Version None)
Quarter: 2007Q1

REPORT INFORMATION
  Report Type: 
  Country: None (occurrence: None)
  Receive Date: 20070126
  Receipt Date: 20070119
  Transmission Date: 20070707
  Serious: Yes (Death, Hospitalization)
  Sender: FDA-Public Use
  Company Number: TAP2007Q00081

PATIENT
  Age: 80 Year
  Sex: Male

DRUGS (7)
  1. LUPRON DEPOT [Suspect]
     Indication: PROSTATE CANCER
     Dosage: 7.5 MG, INTRAMUSCULAR
     Route: 030
     Dates: start: 20010101
  2. DOCETAXEL (DOCETAXEL) [Suspect]
     Indication: PROSTATE CANCER
     Dosage: 35 MG/M2, ONCE, INTRAVENOUS
     Route: 042
     Dates: start: 20040101, end: 20040101
  3. BICALUTAMIDE [Suspect]
     Indication: PROSTATE CANCER
  4. DEXAMETHASONE TAB [Suspect]
     Indication: CHEMOTHERAPY
     Dosage: 8 MG, X 3 DOSES
  5. DEXAMETHASONE TAB [Suspect]
     Indication: PREMEDICATION
     Dosage: 8 MG, X 3 DOSES
  6. MORPHINE SULFATE [Suspect]
  7. NAPROXEN [Suspect]

REACTIONS (17)
  - ASPARTATE AMINOTRANSFERASE INCREASED [None]
  - BLOOD ALKALINE PHOSPHATASE INCREASED [None]
  - BLOOD LACTATE DEHYDROGENASE INCREASED [None]
  - BLOOD URIC ACID INCREASED [None]
  - ELECTROLYTE IMBALANCE [None]
  - FLUID OVERLOAD [None]
  - HAEMOGLOBIN DECREASED [None]
  - HYPOTENSION [None]
  - HYPOVOLAEMIA [None]
  - METASTASES TO BONE [None]
  - PLATELET COUNT DECREASED [None]
  - PROSTATIC SPECIFIC ANTIGEN INCREASED [None]
  - RED BLOOD CELL NUCLEATED MORPHOLOGY PRESENT [None]
  - REFUSAL OF TREATMENT BY PATIENT [None]
  - REFUSAL OF TREATMENT BY RELATIVE [None]
  - RENAL FAILURE [None]
  - WHITE BLOOD CELL COUNT DECREASED [None]
